FAERS Safety Report 23399593 (Version 1)
Quarter: 2024Q1

REPORT INFORMATION
  Report Type: Spontaneous
  Country: AU (occurrence: AU)
  Receive Date: 20240113
  Receipt Date: 20240113
  Transmission Date: 20240410
  Serious: Yes (Other)
  Sender: FDA-Public Use
  Company Number: AU-AMGEN-AUSSP2024006713

PATIENT
  Age: 75 Year
  Sex: Female

DRUGS (6)
  1. KYPROLIS [Suspect]
     Active Substance: CARFILZOMIB
     Indication: Plasma cell myeloma refractory
     Dosage: 122 MILLIGRAM, CYCLICAL
     Route: 042
     Dates: start: 20230811, end: 20230818
  2. KYPROLIS [Suspect]
     Active Substance: CARFILZOMIB
     Dosage: 122 MILLIGRAM, CYCLICAL
     Route: 042
     Dates: start: 2023, end: 20230825
  3. DEXAMETHASONE [Suspect]
     Active Substance: DEXAMETHASONE
     Indication: Plasma cell myeloma refractory
     Dosage: 40 MILLIGRAM, QWK
     Route: 048
     Dates: start: 20230811, end: 20230818
  4. DEXAMETHASONE [Suspect]
     Active Substance: DEXAMETHASONE
     Dosage: 20 MILLIGRAM, QWK
     Route: 048
     Dates: start: 2023
  5. ENOXAPARIN [Concomitant]
     Active Substance: ENOXAPARIN
  6. HEPARIN SODIUM [Concomitant]
     Active Substance: HEPARIN SODIUM

REACTIONS (2)
  - Chronic kidney disease [Recovering/Resolving]
  - Acute kidney injury [Recovering/Resolving]

NARRATIVE: CASE EVENT DATE: 20230822
